FAERS Safety Report 4481021-X (Version None)
Quarter: 2004Q3

REPORT INFORMATION
  Report Type: 
  Country: None (occurrence: None)
  Receive Date: 20040923
  Receipt Date: 20040621
  Transmission Date: 20050211
  Serious: No
  Sender: FDA-Public Use
  Company Number: USA040668961

PATIENT
  Age: 71 Year
  Sex: Female

DRUGS (6)
  1. FORTEO [Suspect]
     Indication: OSTEOPOROSIS
     Dates: start: 20040521
  2. PREMARIN [Concomitant]
  3. SYNTHROID [Concomitant]
  4. NORVASC [Concomitant]
  5. CALCIUM WITH VITAMIN D [Concomitant]
  6. TYLENOL [Concomitant]

REACTIONS (4)
  - DERMATITIS EXFOLIATIVE [None]
  - PAIN IN EXTREMITY [None]
  - PYREXIA [None]
  - SKIN NODULE [None]
